FAERS Safety Report 5097451-1 (Version None)
Quarter: 2006Q3

REPORT INFORMATION
  Report Type: 
  Country: None (occurrence: None)
  Receive Date: 20060901
  Receipt Date: 20060823
  Transmission Date: 20061208
  Serious: Yes (Hospitalization, Disabling)
  Sender: FDA-Public Use
  Company Number: HQWYE970625AUG06

PATIENT
  Age: 52 Year
  Sex: Female

DRUGS (14)
  1. EFFEXOR [Suspect]
     Indication: HOT FLUSH
     Dosage: 25 MG, ORAL
     Route: 048
     Dates: start: 20060701, end: 20060714
  2. EFFEXOR [Suspect]
     Indication: MENOPAUSAL SYMPTOMS
     Dosage: 25 MG, ORAL
     Route: 048
     Dates: start: 20060701, end: 20060714
  3. EFFEXOR XR [Suspect]
     Indication: HOT FLUSH
     Dosage: SEE IMAGE
     Route: 048
     Dates: start: 20050801, end: 20060616
  4. EFFEXOR XR [Suspect]
     Indication: MENOPAUSAL SYMPTOMS
     Dosage: SEE IMAGE
     Route: 048
     Dates: start: 20050801, end: 20060616
  5. EFFEXOR XR [Suspect]
     Indication: HOT FLUSH
     Dosage: SEE IMAGE
     Route: 048
     Dates: start: 20060617, end: 20060630
  6. EFFEXOR XR [Suspect]
     Indication: MENOPAUSAL SYMPTOMS
     Dosage: SEE IMAGE
     Route: 048
     Dates: start: 20060617, end: 20060630
  7. EFFEXOR XR [Suspect]
     Indication: HOT FLUSH
     Dosage: SEE IMAGE
     Route: 048
     Dates: start: 20060801
  8. EFFEXOR XR [Suspect]
     Indication: MENOPAUSAL SYMPTOMS
     Dosage: SEE IMAGE
     Route: 048
     Dates: start: 20060801
  9. LIPITOR [Concomitant]
  10. MULTIVITAMINS (ASCORBIC ACID/ERGOCALCIFEROL/FOLIC ACID/NICOTINAMIDE/PA [Concomitant]
  11. CALCIUM GLUCONATE [Concomitant]
  12. FISH OIL, HYDROGENATED [Concomitant]
  13. ATENOLOL [Concomitant]
  14. HYDROCHLOROTHIAZIDE [Concomitant]

REACTIONS (10)
  - BLOOD PRESSURE INCREASED [None]
  - CEREBROVASCULAR ACCIDENT [None]
  - CONDITION AGGRAVATED [None]
  - DRUG WITHDRAWAL SYNDROME [None]
  - IMPAIRED DRIVING ABILITY [None]
  - INCOHERENT [None]
  - JOINT LOCK [None]
  - TREMOR [None]
  - UNEVALUABLE EVENT [None]
  - VOMITING PROJECTILE [None]
